FAERS Safety Report 10640586 (Version 1)
Quarter: 2014Q4

REPORT INFORMATION
  Report Type: Spontaneous
  Country: BE (occurrence: None)
  Receive Date: 20141205
  Receipt Date: 20141205
  Transmission Date: 20150529
  Serious: Yes (Hospitalization, Other)
  Sender: FDA-Public Use
  Company Number: BE-ZYDUS-005808

PATIENT
  Age: 65 Year
  Sex: Male

DRUGS (5)
  1. ESCITALOPRAM [Suspect]
     Active Substance: ESCITALOPRAM OXALATE
     Indication: DEPRESSION
  2. OMEPRAZOLE (OMEPRAZOLE) [Suspect]
     Active Substance: OMEPRAZOLE
  3. SOTALOL (SOTALOL) [Suspect]
     Active Substance: SOTALOL
     Indication: ATRIAL FIBRILLATION
  4. BISOPROLOL [Concomitant]
     Active Substance: BISOPROLOL
  5. TACROLIMUS (TACROLIMUS) [Suspect]
     Active Substance: TACROLIMUS

REACTIONS (7)
  - Loss of consciousness [None]
  - Pallor [None]
  - Torsade de pointes [None]
  - Vomiting [None]
  - Long QT syndrome [None]
  - Apnoea [None]
  - Hypokalaemia [None]
